FAERS Safety Report 13012301 (Version 1)
Quarter: 2016Q4

REPORT INFORMATION
  Report Type: Spontaneous
  Country: US (occurrence: US)
  Receive Date: 20161209
  Receipt Date: 20161209
  Transmission Date: 20170207
  Serious: Yes (Other)
  Sender: FDA-Public Use
  Company Number: US-PFIZER INC-2016413496

PATIENT
  Age: 60 Year
  Sex: Female
  Weight: 74.83 kg

DRUGS (3)
  1. FASLODEX [Suspect]
     Active Substance: FULVESTRANT
     Indication: BREAST CANCER FEMALE
     Dosage: UNK (500 EVERY 28 DAYS I.M.)
     Route: 030
     Dates: start: 20160901, end: 20161129
  2. XGEVA [Concomitant]
     Active Substance: DENOSUMAB
     Dosage: UNK
  3. IBRANCE [Suspect]
     Active Substance: PALBOCICLIB
     Indication: BREAST CANCER FEMALE
     Dosage: 125 MG, CYCLIC (DAILY X 21 OFF X 7 DAYS)/(ONE TIME A DAY FOR 21 DAYS AND THE OFF FOR A WEEK)
     Route: 048
     Dates: end: 20161129

REACTIONS (4)
  - Haemoglobin decreased [Unknown]
  - Blood potassium decreased [Unknown]
  - Neoplasm progression [Not Recovered/Not Resolved]
  - Platelet count decreased [Unknown]

NARRATIVE: CASE EVENT DATE: 20161122
